FAERS Safety Report 13447910 (Version 2)
Quarter: 2017Q2

REPORT INFORMATION
  Report Type: Report from Study
  Country: None (occurrence: KR)
  Receive Date: 20170417
  Receipt Date: 20170420
  Transmission Date: 20170830
  Serious: Yes (Hospitalization)
  Sender: FDA-Public Use
  Company Number: KR-ABBVIE-17K-090-1884483-00

PATIENT
  Age: 49 Year
  Sex: Female
  Weight: 70 kg

DRUGS (1)
  1. HUMIRA [Suspect]
     Active Substance: ADALIMUMAB
     Indication: COLITIS ULCERATIVE
     Route: 058
     Dates: start: 20170213, end: 20170213

REACTIONS (13)
  - Decreased appetite [Unknown]
  - Haematochezia [Not Recovered/Not Resolved]
  - Pyrexia [Unknown]
  - Gastrointestinal oedema [Unknown]
  - Gastrointestinal pain [Unknown]
  - Weight decreased [Unknown]
  - Arthralgia [Unknown]
  - Chest discomfort [Unknown]
  - Injection site discolouration [Unknown]
  - Chills [Unknown]
  - Pigmentation disorder [Not Recovered/Not Resolved]
  - Inflammatory marker increased [Unknown]
  - Joint stiffness [Unknown]

NARRATIVE: CASE EVENT DATE: 2017
